FAERS Safety Report 21397801 (Version 1)
Quarter: 2022Q3

REPORT INFORMATION
  Report Type: Report from Study
  Country: US (occurrence: US)
  Receive Date: 20220930
  Receipt Date: 20220930
  Transmission Date: 20221027
  Serious: No
  Sender: FDA-Public Use
  Company Number: US-ABBVIE-4134039

PATIENT
  Age: 53 Year
  Sex: Female

DRUGS (1)
  1. SKYRIZI [Suspect]
     Active Substance: RISANKIZUMAB-RZAA
     Indication: Psoriatic arthropathy
     Route: 058

REACTIONS (4)
  - Contusion [Not Recovered/Not Resolved]
  - Injection site pain [Recovered/Resolved]
  - Psoriatic arthropathy [Not Recovered/Not Resolved]
  - Skin plaque [Unknown]

NARRATIVE: CASE EVENT DATE: 20220927
